FAERS Safety Report 12896564 (Version 2)
Quarter: 2016Q4

REPORT INFORMATION
  Report Type: Spontaneous
  Country: US (occurrence: US)
  Receive Date: 20161031
  Receipt Date: 20161214
  Transmission Date: 20170207
  Serious: No
  Sender: FDA-Public Use
  Company Number: US-ELI_LILLY_AND_COMPANY-US201607010670

PATIENT
  Age: 61 Year
  Sex: Female

DRUGS (4)
  1. CYMBALTA [Suspect]
     Active Substance: DULOXETINE HYDROCHLORIDE
     Indication: PRODUCT USED FOR UNKNOWN INDICATION
     Dosage: UNK UNK, UNKNOWN
     Route: 065
  2. CYMBALTA [Suspect]
     Active Substance: DULOXETINE HYDROCHLORIDE
     Dosage: 20 MG, QD
     Route: 048
  3. CYMBALTA [Suspect]
     Active Substance: DULOXETINE HYDROCHLORIDE
     Dosage: 20 MG, QOD
  4. CYMBALTA [Suspect]
     Active Substance: DULOXETINE HYDROCHLORIDE
     Dosage: 20 MG, 3/W
     Dates: end: 201506

REACTIONS (24)
  - Fatigue [Unknown]
  - Irritability [Unknown]
  - Agitation [Unknown]
  - Anxiety [Unknown]
  - Abdominal tenderness [Unknown]
  - Abdominal pain upper [Unknown]
  - Rash [Unknown]
  - Frequent bowel movements [Unknown]
  - Colitis [Unknown]
  - Insomnia [Unknown]
  - Abdominal pain [Unknown]
  - Early satiety [Unknown]
  - Dizziness [Unknown]
  - Weight decreased [Unknown]
  - Vomiting [Unknown]
  - Drug withdrawal syndrome [Unknown]
  - Dysphoria [Unknown]
  - Hyperhidrosis [Unknown]
  - Diarrhoea [Unknown]
  - Vertigo [Unknown]
  - Affect lability [Unknown]
  - Constipation [Unknown]
  - Blood pressure increased [Unknown]
  - Nausea [Unknown]

NARRATIVE: CASE EVENT DATE: 20141030
